FAERS Safety Report 4287148-X (Version None)
Quarter: 2004Q1

REPORT INFORMATION
  Report Type: 
  Country: None (occurrence: None)
  Receive Date: 20040121
  Receipt Date: 20031112
  Transmission Date: 20041129
  Serious: Yes (Other)
  Sender: FDA-Public Use
  Company Number: A03200302738

PATIENT
  Age: 84 Year
  Sex: Female
  Weight: 78.9259 kg

DRUGS (5)
  1. PLAVIX [Suspect]
     Indication: CEREBROVASCULAR ACCIDENT
     Dosage: 75 MG QD - ORAL
     Route: 048
     Dates: start: 20030801, end: 20031018
  2. ACETYLSALICYLIC ACID SRT [Concomitant]
  3. AMLODIPINE BESYLATE [Concomitant]
  4. VALSARTAN [Concomitant]
  5. NAPROXEN SODIUM [Concomitant]

REACTIONS (2)
  - HAEMORRHAGE [None]
  - LARGE INTESTINAL ULCER [None]
